FAERS Safety Report 21976040 (Version 2)
Quarter: 2023Q2

REPORT INFORMATION
  Report Type: Report from Study
  Country: ZA (occurrence: ZA)
  Receive Date: 20230210
  Receipt Date: 20230627
  Transmission Date: 20230722
  Serious: Yes (Other)
  Sender: FDA-Public Use
  Company Number: ZA-002147023-NVSC2022ZA041740

PATIENT
  Age: 61 Year
  Sex: Female

DRUGS (2)
  1. FINGOLIMOD HYDROCHLORIDE [Suspect]
     Active Substance: FINGOLIMOD HYDROCHLORIDE
     Indication: Relapsing-remitting multiple sclerosis
     Dosage: 0.5 MG, QD
     Route: 048
     Dates: start: 20200806
  2. FINGOLIMOD HYDROCHLORIDE [Suspect]
     Active Substance: FINGOLIMOD HYDROCHLORIDE
     Dosage: 0.5 MG, 1 TAB 3 TIMES PER WEEK
     Route: 048

REACTIONS (23)
  - Pseudobulbar palsy [Unknown]
  - Myelosuppression [Unknown]
  - Plasma cell myeloma [Unknown]
  - Bone marrow infiltration [Unknown]
  - HIV infection [Unknown]
  - Malaria [Unknown]
  - Tuberculosis [Unknown]
  - Sepsis [Unknown]
  - Typhoid fever [Unknown]
  - Dysarthria [Unknown]
  - Loss of proprioception [Unknown]
  - Dysstasia [Unknown]
  - Gait disturbance [Unknown]
  - Liver disorder [Unknown]
  - Muscular weakness [Unknown]
  - Congenital anomaly [Unknown]
  - Vitamin B12 deficiency [Unknown]
  - Folate deficiency [Unknown]
  - Zinc deficiency [Unknown]
  - Copper deficiency [Unknown]
  - Nystagmus [Unknown]
  - Muscle spasticity [Unknown]
  - Lymphopenia [Unknown]
